FAERS Safety Report 6877439-8 (Version None)
Quarter: 2010Q3

REPORT INFORMATION
  Report Type: 
  Country: None (occurrence: None)
  Receive Date: 20100727
  Receipt Date: 20100203
  Transmission Date: 20110219
  Serious: No
  Sender: FDA-Public Use
  Company Number: US-ABBOTT-10P-163-0624331-00

PATIENT
  Sex: Female

DRUGS (2)
  1. SYNTHROID [Suspect]
     Indication: HYPOTHYROIDISM
     Dosage: SUNDAYS ONLY
  2. SYNTHROID [Suspect]
     Dosage: MONDAY THRU SATURDAY

REACTIONS (4)
  - EXTERNAL EAR INFLAMMATION [None]
  - OSTEITIS [None]
  - SUBMAXILLARY GLAND ENLARGEMENT [None]
  - SWELLING FACE [None]
